FAERS Safety Report 23416367 (Version 2)
Quarter: 2024Q1

REPORT INFORMATION
  Report Type: Spontaneous
  Country: MY (occurrence: MY)
  Receive Date: 20240118
  Receipt Date: 20240220
  Transmission Date: 20240409
  Serious: No
  Sender: FDA-Public Use
  Company Number: MY-002147023-NVSC2024MY005113

PATIENT

DRUGS (1)
  1. NILOTINIB [Suspect]
     Active Substance: NILOTINIB
     Indication: Chronic myeloid leukaemia
     Dosage: 600 MG, QD, (400-600 MG)
     Route: 048
     Dates: start: 20120601

REACTIONS (1)
  - Therapy non-responder [Unknown]
